FAERS Safety Report 14297071 (Version 1)
Quarter: 2017Q4

REPORT INFORMATION
  Report Type: Spontaneous
  Country: US (occurrence: US)
  Receive Date: 20171218
  Receipt Date: 20171218
  Transmission Date: 20180321
  Serious: No
  Sender: FDA-Public Use
  Company Number: None

PATIENT
  Age: 71 Year
  Sex: Female
  Weight: 74.84 kg

DRUGS (17)
  1. PROHANCE [Suspect]
     Active Substance: GADOTERIDOL
  2. METOPROLOL. [Concomitant]
     Active Substance: METOPROLOL
  3. VITAMIN C [Concomitant]
     Active Substance: ASCORBIC ACID
  4. B-6 [Concomitant]
  5. GADOLINIUM [Suspect]
     Active Substance: GADOLINIUM
     Indication: NUCLEAR MAGNETIC RESONANCE IMAGING
     Route: 042
  6. LASIX [Concomitant]
     Active Substance: FUROSEMIDE
  7. VITAMIN D3 [Concomitant]
     Active Substance: CHOLECALCIFEROL
  8. HORIZANT [Concomitant]
     Active Substance: GABAPENTIN ENACARBIL
  9. KLOR-CON [Concomitant]
     Active Substance: POTASSIUM CHLORIDE
  10. LISINOPRIL. [Concomitant]
     Active Substance: LISINOPRIL
  11. MIRAPEX [Concomitant]
     Active Substance: PRAMIPEXOLE DIHYDROCHLORIDE
  12. OXYCODONE [Concomitant]
     Active Substance: OXYCODONE
  13. PRAMIPEXOLE. [Concomitant]
     Active Substance: PRAMIPEXOLE
  14. PROZAC [Concomitant]
     Active Substance: FLUOXETINE HYDROCHLORIDE
  15. FLUOXETINE HCL [Concomitant]
     Active Substance: FLUOXETINE HYDROCHLORIDE
  16. LASIX [Concomitant]
     Active Substance: FUROSEMIDE
  17. POTASSIUM [Concomitant]
     Active Substance: POTASSIUM

REACTIONS (12)
  - Arthralgia [None]
  - Myalgia [None]
  - Blindness unilateral [None]
  - Muscle spasms [None]
  - Urinary retention [None]
  - Neurogenic bladder [None]
  - Functional gastrointestinal disorder [None]
  - Gait disturbance [None]
  - Pruritus [None]
  - Pain in extremity [None]
  - Quality of life decreased [None]
  - Skin burning sensation [None]

NARRATIVE: CASE EVENT DATE: 20170918
